FAERS Safety Report 9115140 (Version 1)
Quarter: 2013Q1

REPORT INFORMATION
  Report Type: Spontaneous
  Country: US (occurrence: US)
  Receive Date: 20130225
  Receipt Date: 20130225
  Transmission Date: 20140127
  Serious: No
  Sender: FDA-Public Use
  Company Number: US-PFIZER INC-2013068272

PATIENT
  Sex: Female

DRUGS (1)
  1. LYRICA [Suspect]
     Indication: PROCEDURAL PAIN
     Dosage: UNK, 2X/DAY (TWO CAPSULES IN MORNING AND TWO CAPSULES AT NIGHT)
     Route: 048
     Dates: start: 201212

REACTIONS (1)
  - Weight increased [Unknown]
